FAERS Safety Report 9522789 (Version 2)
Quarter: 2013Q4

REPORT INFORMATION
  Report Type: Report from Study
  Country: AR (occurrence: AR)
  Receive Date: 20130913
  Receipt Date: 20131130
  Transmission Date: 20140711
  Serious: Yes (Hospitalization, Other)
  Sender: FDA-Public Use
  Company Number: PHHY2013AR101642

PATIENT
  Sex: Male

DRUGS (1)
  1. DIOVAN [Suspect]
     Indication: HYPERTENSION
     Dosage: 1 DF(160MG), DAILY
     Route: 048

REACTIONS (9)
  - Cerebrovascular accident [Recovering/Resolving]
  - Chronic obstructive pulmonary disease [Recovering/Resolving]
  - Diabetes mellitus [Recovering/Resolving]
  - Myocardial infarction [Unknown]
  - Pulmonary embolism [Unknown]
  - Gait disturbance [Recovering/Resolving]
  - Arthritis infective [Unknown]
  - Limb discomfort [Not Recovered/Not Resolved]
  - Malaise [Not Recovered/Not Resolved]
